FAERS Safety Report 5015772-5 (Version None)
Quarter: 2006Q2

REPORT INFORMATION
  Report Type: 
  Country: None (occurrence: None)
  Receive Date: 20060425
  Receipt Date: 20060123
  Transmission Date: 20061013
  Serious: No
  Sender: FDA-Public Use
  Company Number: 221378

PATIENT
  Age: 37 Year
  Sex: Female
  Weight: 72.6 kg

DRUGS (2)
  1. XOLAIR [Suspect]
     Indication: ASTHMA
     Dosage: 300 MG, Q4W, SUBCUTANEOUS
     Route: 058
  2. OMNICEF [Concomitant]

REACTIONS (1)
  - INJECTION SITE REACTION [None]
